FAERS Safety Report 4754403-6 (Version None)
Quarter: 2005Q3

REPORT INFORMATION
  Report Type: 
  Country: None (occurrence: None)
  Receive Date: 20050829
  Receipt Date: 20040908
  Transmission Date: 20060218
  Serious: Yes (Hospitalization)
  Sender: FDA-Public Use
  Company Number: FR-BOEHRINGER INGELHEIM PHARMACEUTICALS, INC.-2004-FF-00528FF

PATIENT
  Sex: Male
  Weight: 50 kg

DRUGS (3)
  1. TIPRANAVIR + RITONAVIR CO-ADMIN [Suspect]
     Indication: HIV INFECTION
     Dosage: TPV/RTV 500/200 MG B.I.D.
     Route: 048
     Dates: start: 20040114, end: 20040915
  2. FUZEON [Concomitant]
     Indication: HIV INFECTION
     Route: 058
     Dates: start: 20040114, end: 20040726
  3. EPIVIR [Concomitant]
     Indication: HIV INFECTION
     Route: 048

REACTIONS (7)
  - CHILLS [None]
  - COUGH [None]
  - CYANOSIS [None]
  - LUNG DISORDER [None]
  - PYREXIA [None]
  - SPUTUM CULTURE POSITIVE [None]
  - STREPTOCOCCAL INFECTION [None]
